FAERS Safety Report 23430961 (Version 3)
Quarter: 2025Q1

REPORT INFORMATION
  Report Type: Report from Study
  Country: CA (occurrence: CA)
  Receive Date: 20240123
  Receipt Date: 20250228
  Transmission Date: 20250408
  Serious: Yes (Other)
  Sender: TAKEDA
  Company Number: CA-TAKEDA-2023TUS103776

PATIENT
  Age: 69 Year
  Sex: Male

DRUGS (19)
  1. VEDOLIZUMAB [Suspect]
     Active Substance: VEDOLIZUMAB
     Indication: Crohn^s disease
  2. VEDOLIZUMAB [Suspect]
     Active Substance: VEDOLIZUMAB
     Dosage: 300 MILLIGRAM, Q7WEEKS
     Dates: start: 20200923
  3. VEDOLIZUMAB [Suspect]
     Active Substance: VEDOLIZUMAB
     Dosage: 300 MILLIGRAM, Q6WEEKS
     Dates: start: 20230615
  4. VEDOLIZUMAB [Suspect]
     Active Substance: VEDOLIZUMAB
     Dosage: 300 MILLIGRAM, Q6WEEKS
  5. VEDOLIZUMAB [Suspect]
     Active Substance: VEDOLIZUMAB
     Dosage: 300 MILLIGRAM, Q4WEEKS
     Dates: start: 20240617
  6. VEDOLIZUMAB [Suspect]
     Active Substance: VEDOLIZUMAB
     Dosage: 300 MILLIGRAM, Q4WEEKS
  7. ALLOPURINOL [Concomitant]
     Active Substance: ALLOPURINOL
  8. SPIRIVA [Concomitant]
     Active Substance: TIOTROPIUM BROMIDE MONOHYDRATE
  9. POTASSIUM [Concomitant]
     Active Substance: POTASSIUM
  10. VITAMIN D [Concomitant]
     Active Substance: VITAMIN D NOS
  11. B12 [Concomitant]
  12. MAGNESIUM [Concomitant]
     Active Substance: MAGNESIUM
  13. ZOPICLONE [Concomitant]
     Active Substance: ZOPICLONE
  14. APIXABAN [Concomitant]
     Active Substance: APIXABAN
  15. FUROSEMIDE [Concomitant]
     Active Substance: FUROSEMIDE
  16. PREVACID [Concomitant]
     Active Substance: LANSOPRAZOLE
  17. VIOKASE [Concomitant]
     Active Substance: PANCRELIPASE
  18. DIGOXIN [Concomitant]
     Active Substance: DIGOXIN
  19. METOPROLOL [Concomitant]
     Active Substance: METOPROLOL

REACTIONS (4)
  - Atrial fibrillation [Unknown]
  - Cardiac valve disease [Unknown]
  - Cardiac disorder [Unknown]
  - Off label use [Unknown]

NARRATIVE: CASE EVENT DATE: 20200923
